FAERS Safety Report 22007842 (Version 1)
Quarter: 2023Q1

REPORT INFORMATION
  Report Type: Spontaneous
  Country: CA (occurrence: CA)
  Receive Date: 20230218
  Receipt Date: 20230218
  Transmission Date: 20230417
  Serious: Yes (Life-Threatening, Hospitalization, Other)
  Sender: FDA-Public Use
  Company Number: CA-002147023-NVSC2023CA034496

PATIENT
  Sex: Female
  Weight: 3 kg

DRUGS (30)
  1. VERAPAMIL HYDROCHLORIDE [Suspect]
     Active Substance: VERAPAMIL HYDROCHLORIDE
     Indication: Foetal exposure during pregnancy
     Dosage: MATERNAL EXPOSURE DURING PREGNANCY: UNKNOWN
     Route: 064
  2. VERAPAMIL HYDROCHLORIDE [Suspect]
     Active Substance: VERAPAMIL HYDROCHLORIDE
     Dosage: MATERNAL EXPOSURE DURING PREGNANCY: UNKNOWN
     Route: 064
  3. VERAPAMIL HYDROCHLORIDE [Suspect]
     Active Substance: VERAPAMIL HYDROCHLORIDE
     Dosage: MATERNAL EXPOSURE DURING PREGNANCY: 120 MG, QD
     Route: 064
  4. VERAPAMIL HYDROCHLORIDE [Suspect]
     Active Substance: VERAPAMIL HYDROCHLORIDE
     Dosage: MATERNAL EXPOSURE DURING PREGNANCY: UNKNOWN
     Route: 064
  5. VERAPAMIL HYDROCHLORIDE [Suspect]
     Active Substance: VERAPAMIL HYDROCHLORIDE
     Dosage: MATERNAL EXPOSURE DURING PREGNANCY: UNKNOWN
     Route: 064
  6. VERAPAMIL HYDROCHLORIDE [Suspect]
     Active Substance: VERAPAMIL HYDROCHLORIDE
     Dosage: MATERNAL EXPOSURE DURING PREGNANCY: 120 MG, QD
     Route: 064
  7. QUETIAPINE FUMARATE [Suspect]
     Active Substance: QUETIAPINE FUMARATE
     Indication: Foetal exposure during pregnancy
     Dosage: MATERNAL EXPOSURE DURING PREGNANCY: 400 MG, QD
     Route: 064
  8. QUETIAPINE FUMARATE [Suspect]
     Active Substance: QUETIAPINE FUMARATE
     Indication: Foetal exposure during pregnancy
     Dosage: MATERNAL EXPOSURE DURING PREGNANCY: 400 MG, QD
     Route: 064
  9. QUETIAPINE FUMARATE [Suspect]
     Active Substance: QUETIAPINE FUMARATE
     Dosage: MATERNAL EXPOSURE DURING PREGNANCY: UNKNOWN
     Route: 064
  10. QUETIAPINE FUMARATE [Suspect]
     Active Substance: QUETIAPINE FUMARATE
     Dosage: MATERNAL EXPOSURE DURING PREGNANCY: UNKNOWN
     Route: 064
  11. QUETIAPINE FUMARATE [Suspect]
     Active Substance: QUETIAPINE FUMARATE
     Dosage: MATERNAL EXPOSURE DURING PREGNANCY: UNKNOWN
     Route: 064
  12. QUETIAPINE FUMARATE [Suspect]
     Active Substance: QUETIAPINE FUMARATE
     Dosage: MATERNAL EXPOSURE DURING PREGNANCY: UNKNOWN
     Route: 064
  13. FLUOXETINE HYDROCHLORIDE [Suspect]
     Active Substance: FLUOXETINE HYDROCHLORIDE
     Indication: Foetal exposure during pregnancy
     Dosage: MATERNAL EXPOSURE DURING PREGNANCY: UNKNOWN
     Route: 064
  14. FLUOXETINE HYDROCHLORIDE [Suspect]
     Active Substance: FLUOXETINE HYDROCHLORIDE
     Dosage: MATERNAL EXPOSURE DURING PREGNANCY: UNKNOWN
     Route: 064
  15. FLUOXETINE HYDROCHLORIDE [Suspect]
     Active Substance: FLUOXETINE HYDROCHLORIDE
     Dosage: MATERNAL EXPOSURE DURING PREGNANCY: 40 MG, QD
     Route: 064
  16. FLUOXETINE HYDROCHLORIDE [Suspect]
     Active Substance: FLUOXETINE HYDROCHLORIDE
     Dosage: MATERNAL EXPOSURE DURING PREGNANCY: UNKNOWN
     Route: 064
  17. FLUOXETINE HYDROCHLORIDE [Suspect]
     Active Substance: FLUOXETINE HYDROCHLORIDE
     Dosage: MATERNAL EXPOSURE DURING PREGNANCY: UNKNOWN
     Route: 064
  18. FLUOXETINE HYDROCHLORIDE [Suspect]
     Active Substance: FLUOXETINE HYDROCHLORIDE
     Dosage: MATERNAL EXPOSURE DURING PREGNANCY: 40 MG, QD
     Route: 064
  19. LITHIUM CARBONATE [Suspect]
     Active Substance: LITHIUM CARBONATE
     Indication: Foetal exposure during pregnancy
     Dosage: MATERNAL EXPOSURE DURING PREGNANCY: UNKNOWN
     Route: 064
  20. LITHIUM CARBONATE [Suspect]
     Active Substance: LITHIUM CARBONATE
     Dosage: MATERNAL EXPOSURE DURING PREGNANCY: 600 MG, BID
     Route: 064
  21. LITHIUM CARBONATE [Suspect]
     Active Substance: LITHIUM CARBONATE
     Dosage: MATERNAL EXPOSURE DURING PREGNANCY: UNKNOWN
     Route: 064
  22. LITHIUM CARBONATE [Suspect]
     Active Substance: LITHIUM CARBONATE
     Dosage: MATERNAL EXPOSURE DURING PREGNANCY: 600 MG, BID
     Route: 064
  23. LITHIUM CARBONATE [Suspect]
     Active Substance: LITHIUM CARBONATE
     Dosage: MATERNAL EXPOSURE DURING PREGNANCY: UNKNOWN
     Route: 064
  24. LITHIUM CARBONATE [Suspect]
     Active Substance: LITHIUM CARBONATE
     Dosage: MATERNAL EXPOSURE DURING PREGNANCY: UNKNOWN
     Route: 064
  25. HYDROCHLOROTHIAZIDE [Concomitant]
     Active Substance: HYDROCHLOROTHIAZIDE
     Indication: Foetal exposure during pregnancy
     Dosage: MATERNAL EXPOSURE DURING PREGNANCY: UNKNOWN
     Route: 064
  26. HYDROCHLOROTHIAZIDE [Concomitant]
     Active Substance: HYDROCHLOROTHIAZIDE
     Dosage: MATERNAL EXPOSURE DURING PREGNANCY: UNKNOWN
     Route: 064
  27. OMEPRAZOLE MAGNESIUM [Concomitant]
     Active Substance: OMEPRAZOLE MAGNESIUM
     Indication: Foetal exposure during pregnancy
     Dosage: MATERNAL EXPOSURE DURING PREGNANCY: UNKNOWN
     Route: 064
  28. OMEPRAZOLE MAGNESIUM [Concomitant]
     Active Substance: OMEPRAZOLE MAGNESIUM
     Dosage: MATERNAL EXPOSURE DURING PREGNANCY: UNKNOWN
     Route: 064
  29. SUMATRIPTAN SUCCINATE [Concomitant]
     Active Substance: SUMATRIPTAN SUCCINATE
     Indication: Foetal exposure during pregnancy
     Dosage: MATERNAL EXPOSURE DURING PREGNANCY: UNKNOWN
     Route: 064
  30. SUMATRIPTAN SUCCINATE [Concomitant]
     Active Substance: SUMATRIPTAN SUCCINATE
     Dosage: MATERNAL EXPOSURE DURING PREGNANCY: UNKNOWN
     Route: 064

REACTIONS (3)
  - Hypotonia neonatal [Recovered/Resolved]
  - Neonatal respiratory distress [Recovered/Resolved]
  - Foetal exposure during pregnancy [Unknown]
